FAERS Safety Report 7793779 (Version 3)
Quarter: 2013Q3

REPORT INFORMATION
  Report Type: Spontaneous
  Country: US (occurrence: US)
  Receive Date: 20110201
  Receipt Date: 20130820
  Transmission Date: 20140515
  Serious: Yes (Hospitalization, Other)
  Sender: FDA-Public Use
  Company Number: US-JNJFOC-20110106048

PATIENT
  Sex: Female
  Weight: 80.74 kg

DRUGS (13)
  1. REMICADE [Suspect]
     Indication: RHEUMATOID ARTHRITIS
     Dosage: FIRST 8 WEEK MAINTENANCE DOSE
     Route: 042
     Dates: start: 20101116
  2. REMICADE [Suspect]
     Indication: RHEUMATOID ARTHRITIS
     Route: 042
     Dates: start: 20100602
  3. PLAQUENIL [Concomitant]
     Route: 065
  4. MTX [Concomitant]
     Route: 065
  5. LEXAPRO [Concomitant]
     Route: 065
  6. IBUPROFEN [Concomitant]
     Dosage: PRN
     Route: 065
  7. VALIUM [Concomitant]
     Route: 065
  8. FLEXERIL [Concomitant]
     Route: 065
  9. TEMAZEPAM [Concomitant]
     Route: 065
  10. BYSTOLIC [Concomitant]
     Route: 065
  11. VICODIN [Concomitant]
     Route: 065
  12. FOLIC ACID [Concomitant]
     Route: 065
  13. SERTRALINE [Concomitant]
     Route: 065

REACTIONS (9)
  - Hypertension [Recovered/Resolved]
  - Dyskinesia [Unknown]
  - Muscle spasms [Unknown]
  - Oxygen saturation decreased [Unknown]
  - Chest discomfort [Unknown]
  - Dyspnoea [Unknown]
  - Infusion related reaction [Unknown]
  - Headache [Recovered/Resolved]
  - Nausea [Unknown]
